FAERS Safety Report 17720198 (Version 37)
Quarter: 2022Q4

REPORT INFORMATION
  Report Type: Spontaneous
  Country: IE (occurrence: IE)
  Receive Date: 20200428
  Receipt Date: 20221120
  Transmission Date: 20230113
  Serious: Yes (Death, Hospitalization, Other)
  Sender: FDA-Public Use
  Company Number: GB-CELGENE-GBR-20191004799

PATIENT
  Age: 74 Year
  Sex: Male

DRUGS (314)
  1. DEXAMETHASONE [Suspect]
     Active Substance: DEXAMETHASONE
     Indication: Plasma cell myeloma
     Dosage: 20 MG, QW
     Route: 048
     Dates: start: 20180821, end: 20190101
  2. DEXAMETHASONE [Suspect]
     Active Substance: DEXAMETHASONE
     Dosage: 20 MG, QW
     Route: 048
     Dates: start: 20180917, end: 20181007
  3. DEXAMETHASONE [Suspect]
     Active Substance: DEXAMETHASONE
     Dosage: UNK (SOLUBLE TABLET)
     Route: 048
     Dates: start: 20181015
  4. DEXAMETHASONE [Suspect]
     Active Substance: DEXAMETHASONE
     Dosage: 20 MG, QW (SOLUBLE TABLET)
     Route: 048
     Dates: start: 20181016, end: 20181105
  5. DEXAMETHASONE [Suspect]
     Active Substance: DEXAMETHASONE
     Dosage: UNK
     Route: 048
     Dates: start: 20181112
  6. DEXAMETHASONE [Suspect]
     Active Substance: DEXAMETHASONE
     Dosage: 20 MG (SOLUBLE TABLET)
     Route: 048
     Dates: start: 20181113, end: 20181203
  7. DEXAMETHASONE [Suspect]
     Active Substance: DEXAMETHASONE
     Dosage: UNK
     Route: 048
     Dates: start: 20181210
  8. DEXAMETHASONE [Suspect]
     Active Substance: DEXAMETHASONE
     Dosage: 20 MG, QW
     Route: 048
     Dates: start: 20181211, end: 20190101
  9. DEXAMETHASONE [Suspect]
     Active Substance: DEXAMETHASONE
     Dosage: UNK (SOLUBLE TABLET)
     Route: 048
  10. DEXAMETHASONE [Suspect]
     Active Substance: DEXAMETHASONE
     Dosage: 20 MG, QW (SOLUBLE TABLET)
     Route: 048
     Dates: start: 20190614, end: 20190830
  11. DEXAMETHASONE [Suspect]
     Active Substance: DEXAMETHASONE
     Dosage: UNK
     Route: 048
     Dates: start: 20190809
  12. DEXAMETHASONE [Suspect]
     Active Substance: DEXAMETHASONE
     Dosage: 20 MG, QW
     Route: 048
     Dates: start: 20190906, end: 20191228
  13. DEXAMETHASONE [Suspect]
     Active Substance: DEXAMETHASONE
     Dosage: 20 MG, QW
     Route: 048
     Dates: start: 20191006, end: 20191010
  14. DEXAMETHASONE [Suspect]
     Active Substance: DEXAMETHASONE
     Dosage: 20 MG, QW
     Route: 048
     Dates: start: 20191213, end: 20191228
  15. DEXAMETHASONE [Suspect]
     Active Substance: DEXAMETHASONE
     Dosage: 20 MG
     Route: 048
     Dates: start: 20190123
  16. DEXAMETHASONE [Suspect]
     Active Substance: DEXAMETHASONE
     Dosage: 20 MG, QW (SOLUBLE TABLET)
     Route: 048
     Dates: start: 20190906, end: 20191010
  17. DEXAMETHASONE [Suspect]
     Active Substance: DEXAMETHASONE
     Dosage: 20 MG, QW (SOLUBLE TABLET)
     Route: 048
     Dates: start: 20191228
  18. DEXAMETHASONE [Suspect]
     Active Substance: DEXAMETHASONE
     Dosage: UNK
     Route: 048
  19. DEXAMETHASONE [Suspect]
     Active Substance: DEXAMETHASONE
     Dosage: 20 MG, QW (SOLUBLE TABLET)
     Route: 048
     Dates: start: 20190614, end: 20190830
  20. DEXAMETHASONE [Suspect]
     Active Substance: DEXAMETHASONE
     Dosage: 20 MG, QW (SOLUBLE TABLET)
     Route: 048
     Dates: start: 20181113, end: 20181203
  21. DEXAMETHASONE [Suspect]
     Active Substance: DEXAMETHASONE
     Dosage: UNK
     Route: 048
     Dates: start: 20181112
  22. DEXAMETHASONE [Suspect]
     Active Substance: DEXAMETHASONE
     Dosage: UNK
     Route: 048
     Dates: start: 20181210
  23. DEXAMETHASONE [Suspect]
     Active Substance: DEXAMETHASONE
     Dosage: 20 MG, QW (SOLUBLE TABLET)
     Route: 048
     Dates: start: 20180821, end: 20190101
  24. DEXAMETHASONE [Suspect]
     Active Substance: DEXAMETHASONE
     Dosage: 20 MG, QW (SOLUBLE TABLET)
     Route: 048
     Dates: start: 20181113, end: 20181203
  25. DEXAMETHASONE [Suspect]
     Active Substance: DEXAMETHASONE
     Dosage: UNK
     Route: 048
     Dates: start: 20181112
  26. DEXAMETHASONE [Suspect]
     Active Substance: DEXAMETHASONE
     Dosage: UNK
     Route: 048
  27. DEXAMETHASONE [Suspect]
     Active Substance: DEXAMETHASONE
     Dosage: 20 MG, QW
     Route: 048
     Dates: start: 20191213, end: 20191228
  28. DEXAMETHASONE [Suspect]
     Active Substance: DEXAMETHASONE
     Dosage: UNK (SOLUBLE TABLET)
     Route: 048
     Dates: start: 20181010
  29. IXAZOMIB CITRATE [Suspect]
     Active Substance: IXAZOMIB CITRATE
     Indication: Plasma cell myeloma
     Dosage: 4 MG, QW
     Route: 048
     Dates: start: 20190615, end: 20191226
  30. IXAZOMIB CITRATE [Suspect]
     Active Substance: IXAZOMIB CITRATE
     Dosage: 4 MG, QW
     Route: 048
     Dates: start: 20190615, end: 20190622
  31. IXAZOMIB CITRATE [Suspect]
     Active Substance: IXAZOMIB CITRATE
     Dosage: 4 MG, QW
     Route: 048
     Dates: start: 20190615, end: 20190615
  32. IXAZOMIB CITRATE [Suspect]
     Active Substance: IXAZOMIB CITRATE
     Dosage: 4 MG, QW
     Route: 048
     Dates: start: 20190615, end: 20190619
  33. IXAZOMIB CITRATE [Suspect]
     Active Substance: IXAZOMIB CITRATE
     Dosage: 4 MG, QD
     Route: 048
     Dates: start: 20190615, end: 20190619
  34. IXAZOMIB CITRATE [Suspect]
     Active Substance: IXAZOMIB CITRATE
     Dosage: 47.5 MG, QW
     Route: 048
     Dates: start: 20190615
  35. IXAZOMIB CITRATE [Suspect]
     Active Substance: IXAZOMIB CITRATE
     Dosage: 4 MG, QW
     Route: 048
     Dates: start: 20190615, end: 20190622
  36. IXAZOMIB CITRATE [Suspect]
     Active Substance: IXAZOMIB CITRATE
     Dosage: 4 MG
     Route: 065
     Dates: start: 20190615, end: 20190615
  37. IXAZOMIB CITRATE [Suspect]
     Active Substance: IXAZOMIB CITRATE
     Dosage: 4 MG, QW
     Route: 048
     Dates: start: 20190620, end: 20190802
  38. IXAZOMIB CITRATE [Suspect]
     Active Substance: IXAZOMIB CITRATE
     Dosage: 4 MG, QW
     Route: 048
     Dates: start: 20190620, end: 20190802
  39. IXAZOMIB CITRATE [Suspect]
     Active Substance: IXAZOMIB CITRATE
     Dosage: 4 MG, QW
     Route: 048
     Dates: start: 20190629, end: 20190713
  40. IXAZOMIB CITRATE [Suspect]
     Active Substance: IXAZOMIB CITRATE
     Dosage: 4 MG, QW
     Route: 048
     Dates: start: 20190629, end: 20190713
  41. IXAZOMIB CITRATE [Suspect]
     Active Substance: IXAZOMIB CITRATE
     Dosage: 4 MG, QW
     Route: 048
     Dates: start: 20190629, end: 20190713
  42. IXAZOMIB CITRATE [Suspect]
     Active Substance: IXAZOMIB CITRATE
     Dosage: 4 MG
     Route: 048
     Dates: start: 20190803, end: 20190809
  43. IXAZOMIB CITRATE [Suspect]
     Active Substance: IXAZOMIB CITRATE
     Dosage: 4 MG, QW
     Route: 048
     Dates: start: 20190803, end: 20190809
  44. IXAZOMIB CITRATE [Suspect]
     Active Substance: IXAZOMIB CITRATE
     Dosage: 4 MG, QW
     Route: 048
     Dates: start: 20190803, end: 20190809
  45. IXAZOMIB CITRATE [Suspect]
     Active Substance: IXAZOMIB CITRATE
     Dosage: 4 MG, QW
     Route: 048
     Dates: start: 20190810, end: 20190824
  46. IXAZOMIB CITRATE [Suspect]
     Active Substance: IXAZOMIB CITRATE
     Dosage: 4 MG
     Route: 048
     Dates: start: 20190810, end: 20190824
  47. IXAZOMIB CITRATE [Suspect]
     Active Substance: IXAZOMIB CITRATE
     Dosage: 4 MG, QW
     Route: 048
     Dates: start: 20191213, end: 20191226
  48. IXAZOMIB CITRATE [Suspect]
     Active Substance: IXAZOMIB CITRATE
     Dosage: UNK
     Route: 048
  49. IXAZOMIB CITRATE [Suspect]
     Active Substance: IXAZOMIB CITRATE
     Dosage: UNK
     Route: 048
     Dates: start: 20191231
  50. IXAZOMIB CITRATE [Suspect]
     Active Substance: IXAZOMIB CITRATE
     Dosage: 800 MG
     Route: 048
     Dates: start: 20191231
  51. IXAZOMIB CITRATE [Suspect]
     Active Substance: IXAZOMIB CITRATE
     Dosage: 4 MG, QW
     Route: 048
  52. IXAZOMIB CITRATE [Suspect]
     Active Substance: IXAZOMIB CITRATE
     Dosage: UNK
     Route: 048
  53. IXAZOMIB CITRATE [Suspect]
     Active Substance: IXAZOMIB CITRATE
     Dosage: 4 MG, QW
     Route: 048
  54. IXAZOMIB CITRATE [Suspect]
     Active Substance: IXAZOMIB CITRATE
     Dosage: UNK
     Route: 065
  55. IXAZOMIB CITRATE [Suspect]
     Active Substance: IXAZOMIB CITRATE
     Dosage: 4 MG, QW
     Route: 048
  56. IXAZOMIB CITRATE [Suspect]
     Active Substance: IXAZOMIB CITRATE
     Dosage: UNK
     Route: 048
  57. IXAZOMIB CITRATE [Suspect]
     Active Substance: IXAZOMIB CITRATE
     Dosage: 30.286 MG
     Route: 065
  58. REVLIMID [Suspect]
     Active Substance: LENALIDOMIDE
     Indication: Plasma cell myeloma
     Dosage: 25 MG, QD
     Route: 048
     Dates: start: 20180821, end: 20180909
  59. REVLIMID [Suspect]
     Active Substance: LENALIDOMIDE
     Dosage: 25 MG, QD
     Route: 048
     Dates: start: 20180917, end: 20181007
  60. REVLIMID [Suspect]
     Active Substance: LENALIDOMIDE
     Dosage: 25 MG, QD
     Route: 048
     Dates: start: 20181015, end: 20181104
  61. REVLIMID [Suspect]
     Active Substance: LENALIDOMIDE
     Dosage: 25 MG, QD
     Route: 048
     Dates: start: 20181112, end: 20181202
  62. REVLIMID [Suspect]
     Active Substance: LENALIDOMIDE
     Dosage: 25 MG, QD
     Route: 048
     Dates: start: 20181210, end: 20181231
  63. REVLIMID [Suspect]
     Active Substance: LENALIDOMIDE
     Dosage: UNK
     Route: 048
     Dates: start: 20181210
  64. REVLIMID [Suspect]
     Active Substance: LENALIDOMIDE
     Dosage: 25 MG, QD
     Route: 048
     Dates: start: 20190614, end: 20190704
  65. REVLIMID [Suspect]
     Active Substance: LENALIDOMIDE
     Dosage: 4 MG, QW
     Route: 065
     Dates: start: 20190629
  66. REVLIMID [Suspect]
     Active Substance: LENALIDOMIDE
     Dosage: 25 MG, QD
     Route: 048
     Dates: start: 20190712, end: 20190801
  67. REVLIMID [Suspect]
     Active Substance: LENALIDOMIDE
     Dosage: 25 MG, QD
     Route: 048
     Dates: start: 20190809, end: 20190829
  68. REVLIMID [Suspect]
     Active Substance: LENALIDOMIDE
     Dosage: 25 MG, QD
     Route: 048
     Dates: start: 20190906, end: 20191231
  69. REVLIMID [Suspect]
     Active Substance: LENALIDOMIDE
     Dosage: 25 MG, QD
     Route: 048
     Dates: start: 20190906, end: 20191010
  70. REVLIMID [Suspect]
     Active Substance: LENALIDOMIDE
     Dosage: 25 MG, QD
     Route: 048
     Dates: start: 20191112, end: 20191202
  71. REVLIMID [Suspect]
     Active Substance: LENALIDOMIDE
     Dosage: 25 MG, QD
     Route: 048
     Dates: start: 20191112, end: 20191202
  72. REVLIMID [Suspect]
     Active Substance: LENALIDOMIDE
     Dosage: 25 MG, QD
     Route: 048
     Dates: start: 20191210
  73. REVLIMID [Suspect]
     Active Substance: LENALIDOMIDE
     Dosage: 25 MG, QD
     Route: 048
     Dates: start: 20191213, end: 20191231
  74. REVLIMID [Suspect]
     Active Substance: LENALIDOMIDE
     Dosage: 300 MG, QW
     Route: 065
     Dates: start: 20191213
  75. REVLIMID [Suspect]
     Active Substance: LENALIDOMIDE
     Dosage: UNK
     Route: 048
  76. REVLIMID [Suspect]
     Active Substance: LENALIDOMIDE
     Dosage: UNK
     Route: 048
  77. REVLIMID [Suspect]
     Active Substance: LENALIDOMIDE
     Dosage: UNK
     Route: 065
     Dates: start: 20191231
  78. REVLIMID [Suspect]
     Active Substance: LENALIDOMIDE
     Dosage: UNK
     Route: 048
  79. REVLIMID [Suspect]
     Active Substance: LENALIDOMIDE
     Dosage: UNK
     Route: 065
  80. REVLIMID [Suspect]
     Active Substance: LENALIDOMIDE
     Dosage: UNK
     Route: 048
  81. REVLIMID [Suspect]
     Active Substance: LENALIDOMIDE
     Dosage: UNK
     Route: 048
  82. REVLIMID [Suspect]
     Active Substance: LENALIDOMIDE
     Dosage: UNK
     Route: 065
  83. REVLIMID [Suspect]
     Active Substance: LENALIDOMIDE
     Dosage: 25 MG (AM)
     Route: 048
     Dates: start: 20190123
  84. REVLIMID [Suspect]
     Active Substance: LENALIDOMIDE
     Dosage: 300 MG, QW
     Route: 065
     Dates: start: 20191213, end: 20191231
  85. REVLIMID [Suspect]
     Active Substance: LENALIDOMIDE
     Dosage: 25 MG, QD
     Route: 048
     Dates: start: 20191213
  86. REVLIMID [Suspect]
     Active Substance: LENALIDOMIDE
     Dosage: 25 MG, QD
     Route: 048
     Dates: start: 20190605, end: 20190622
  87. REVLIMID [Suspect]
     Active Substance: LENALIDOMIDE
     Dosage: 25 MG, QD
     Route: 048
     Dates: start: 20191213, end: 20191231
  88. REVLIMID [Suspect]
     Active Substance: LENALIDOMIDE
     Dosage: UNK
     Route: 065
  89. NINLARO [Suspect]
     Active Substance: IXAZOMIB CITRATE
     Indication: Plasma cell myeloma
     Dosage: 20 MG, QW
     Route: 048
     Dates: start: 20191213, end: 20191228
  90. VITAMIN D NOS [Concomitant]
     Active Substance: VITAMIN D NOS
     Indication: Malnutrition
     Dosage: UNK, QD
     Route: 048
     Dates: start: 20190102, end: 20191029
  91. VITAMIN D NOS [Concomitant]
     Active Substance: VITAMIN D NOS
     Indication: Prophylaxis
     Dosage: UNK, QD
     Route: 065
     Dates: start: 20190102, end: 20190129
  92. VITAMIN D NOS [Concomitant]
     Active Substance: VITAMIN D NOS
     Dosage: UNK, BID
     Route: 048
     Dates: start: 20190102, end: 20191029
  93. VITAMIN D NOS [Concomitant]
     Active Substance: VITAMIN D NOS
     Dosage: UNK, BID
     Route: 048
     Dates: start: 20190103, end: 20191011
  94. VITAMIN D NOS [Concomitant]
     Active Substance: VITAMIN D NOS
     Dosage: UNK
     Route: 048
     Dates: start: 20190103
  95. VITAMIN D NOS [Concomitant]
     Active Substance: VITAMIN D NOS
     Dosage: 1 DOSAGE FORM, QD
     Route: 065
     Dates: start: 20190103, end: 20191011
  96. VITAMIN D NOS [Concomitant]
     Active Substance: VITAMIN D NOS
     Dosage: UNK
     Route: 065
     Dates: start: 20190103, end: 20191011
  97. VITAMIN D NOS [Concomitant]
     Active Substance: VITAMIN D NOS
     Dosage: UNK, QD
     Route: 048
     Dates: start: 20190104
  98. VITAMIN D NOS [Concomitant]
     Active Substance: VITAMIN D NOS
     Dosage: UNK, BID
     Route: 048
     Dates: start: 20190104
  99. VITAMIN D NOS [Concomitant]
     Active Substance: VITAMIN D NOS
     Dosage: 1 DOSAGE FORM, QD
     Route: 048
     Dates: start: 20190104
  100. VITAMIN D NOS [Concomitant]
     Active Substance: VITAMIN D NOS
     Dosage: UNK, QD
     Route: 065
     Dates: start: 20190130, end: 20191011
  101. VITAMIN D NOS [Concomitant]
     Active Substance: VITAMIN D NOS
     Dosage: UNK UNK, QD
     Route: 048
     Dates: start: 20190103, end: 20191111
  102. MYCOSTATIN [Concomitant]
     Active Substance: NYSTATIN
     Indication: Tongue coated
     Dosage: UNK
     Route: 048
     Dates: start: 20190104
  103. MYCOSTATIN [Concomitant]
     Active Substance: NYSTATIN
     Indication: Prophylaxis
     Dosage: 1 DOSAGE FORM
     Route: 048
     Dates: start: 20190104
  104. MYCOSTATIN [Concomitant]
     Active Substance: NYSTATIN
     Dosage: UNK (420 MILLILITRE)
     Route: 048
     Dates: start: 20190104
  105. MYCOSTATIN [Concomitant]
     Active Substance: NYSTATIN
     Dosage: 9 ML, QD
     Route: 048
     Dates: start: 20191116, end: 20191220
  106. MYCOSTATIN [Concomitant]
     Active Substance: NYSTATIN
     Dosage: 3 ML, QD
     Route: 048
     Dates: start: 20191116, end: 20191220
  107. MYCOSTATIN [Concomitant]
     Active Substance: NYSTATIN
     Dosage: 9 MG, QD
     Route: 048
     Dates: start: 20191116, end: 20191220
  108. MYCOSTATIN [Concomitant]
     Active Substance: NYSTATIN
     Dosage: UNK
     Route: 065
  109. MYCOSTATIN [Concomitant]
     Active Substance: NYSTATIN
     Dosage: 420 ML
     Route: 048
  110. MYCOSTATIN [Concomitant]
     Active Substance: NYSTATIN
     Dosage: UNK (420 MILLILITRE)
     Route: 048
  111. MYCOSTATIN [Concomitant]
     Active Substance: NYSTATIN
     Dosage: 1 DOSAGE FORM
     Route: 048
     Dates: end: 20190104
  112. MYCOSTATIN [Concomitant]
     Active Substance: NYSTATIN
     Dosage: 450 ML
     Route: 065
     Dates: start: 20191116
  113. CARBOHYDRATES\FATTY ACIDS\MINERALS\PROTEIN\VITAMINS [Concomitant]
     Active Substance: CARBOHYDRATES\FATTY ACIDS\MINERALS\PROTEIN\VITAMINS
     Indication: Malnutrition
     Dosage: UNK, QD
     Route: 048
     Dates: start: 20190102, end: 20191029
  114. CARBOHYDRATES\FATTY ACIDS\MINERALS\PROTEIN\VITAMINS [Concomitant]
     Active Substance: CARBOHYDRATES\FATTY ACIDS\MINERALS\PROTEIN\VITAMINS
     Dosage: 2 DOSAGE FORM, QD
     Route: 048
     Dates: start: 20190103, end: 20191011
  115. CARBOHYDRATES\FATTY ACIDS\MINERALS\PROTEIN\VITAMINS [Concomitant]
     Active Substance: CARBOHYDRATES\FATTY ACIDS\MINERALS\PROTEIN\VITAMINS
     Dosage: UNK, BID
     Route: 048
     Dates: start: 20190103, end: 20191011
  116. CARBOHYDRATES\FATTY ACIDS\MINERALS\PROTEIN\VITAMINS [Concomitant]
     Active Substance: CARBOHYDRATES\FATTY ACIDS\MINERALS\PROTEIN\VITAMINS
     Dosage: UNK, QD
     Route: 048
     Dates: start: 20190103, end: 20191011
  117. INFLUENZA VIRUS VACCINE [Concomitant]
     Active Substance: INFLUENZA VIRUS VACCINE
     Indication: Prophylaxis
     Dosage: 1 DOSAGE FORM, QD, (1 AMPULE)
     Route: 065
     Dates: start: 20191112, end: 20191112
  118. SULFAMETHOXAZOLE\TRIMETHOPRIM [Concomitant]
     Active Substance: SULFAMETHOXAZOLE\TRIMETHOPRIM
     Indication: Prophylaxis
     Dosage: 20 ML, QD
     Route: 048
     Dates: start: 20190102, end: 20191015
  119. SULFAMETHOXAZOLE\TRIMETHOPRIM [Concomitant]
     Active Substance: SULFAMETHOXAZOLE\TRIMETHOPRIM
     Dosage: 10 ML, QD
     Route: 048
     Dates: start: 20191011
  120. PANTOPRAZOLE [Concomitant]
     Active Substance: PANTOPRAZOLE
     Indication: Prophylaxis
     Dosage: 20 MG, QD
     Route: 048
     Dates: start: 20190102, end: 20191015
  121. PANTOPRAZOLE [Concomitant]
     Active Substance: PANTOPRAZOLE
     Dosage: 20 MG, QD
     Route: 048
     Dates: start: 20190102, end: 20190102
  122. PANTOPRAZOLE [Concomitant]
     Active Substance: PANTOPRAZOLE
     Dosage: 80 MG, QD
     Route: 048
     Dates: start: 20191016
  123. PANTOPRAZOLE [Concomitant]
     Active Substance: PANTOPRAZOLE
     Dosage: 80 MG, QD
     Route: 048
     Dates: start: 20191016
  124. PANTOPRAZOLE [Concomitant]
     Active Substance: PANTOPRAZOLE
     Dosage: 80 MG, QD (40 MG, BID (80 MG, QD)
     Route: 048
     Dates: start: 20191016
  125. PANTOPRAZOLE [Concomitant]
     Active Substance: PANTOPRAZOLE
     Dosage: UNK, QD
     Route: 048
     Dates: start: 20191020, end: 20191020
  126. BUDESONIDE [Concomitant]
     Active Substance: BUDESONIDE
     Indication: Chronic obstructive pulmonary disease
     Dosage: 1 MG, QD
     Route: 048
     Dates: start: 20200107
  127. CHLORHEXIDINE [Concomitant]
     Active Substance: CHLORHEXIDINE
     Indication: Tongue coated
     Dosage: 30 ML, QD (10 ML, TID (30 ML)
     Route: 048
     Dates: start: 20191116, end: 20191220
  128. CHLORHEXIDINE [Concomitant]
     Active Substance: CHLORHEXIDINE
     Dosage: UNK
     Route: 065
  129. ZOLPIDEM [Concomitant]
     Active Substance: ZOLPIDEM TARTRATE
     Indication: Prophylaxis
     Dosage: 10 MG
     Route: 048
     Dates: start: 20180816, end: 20191029
  130. ZOLPIDEM [Concomitant]
     Active Substance: ZOLPIDEM TARTRATE
     Dosage: 10 MG
     Route: 065
     Dates: start: 20180819, end: 20191029
  131. ZOLEDRONIC ACID [Concomitant]
     Active Substance: ZOLEDRONIC ACID
     Indication: Prophylaxis
     Dosage: 4 MG, QMO
     Route: 041
     Dates: start: 20181106
  132. ZOLEDRONIC ACID [Concomitant]
     Active Substance: ZOLEDRONIC ACID
     Dosage: 4 MG, QD
     Route: 041
     Dates: start: 20181106
  133. ZOLEDRONIC ACID [Concomitant]
     Active Substance: ZOLEDRONIC ACID
     Dosage: 4 MG, QD
     Route: 041
     Dates: start: 20181106
  134. ZOLEDRONIC ACID [Concomitant]
     Active Substance: ZOLEDRONIC ACID
     Dosage: 4 MG, QD
     Route: 041
     Dates: start: 20181106
  135. ZOLEDRONIC ACID [Concomitant]
     Active Substance: ZOLEDRONIC ACID
     Dosage: 4 MG, QD
     Route: 041
     Dates: start: 20181106
  136. ZOLEDRONIC ACID [Concomitant]
     Active Substance: ZOLEDRONIC ACID
     Dosage: 4 MG, QD
     Route: 041
     Dates: start: 20181106
  137. CALCIUM\CHOLECALCIFEROL [Concomitant]
     Active Substance: CALCIUM\CHOLECALCIFEROL
     Indication: Bone disorder
     Dosage: 6 DOSAGE FORM, QD (2 TABLET)
     Route: 048
     Dates: start: 20190103, end: 20190211
  138. CALCIUM\CHOLECALCIFEROL [Concomitant]
     Active Substance: CALCIUM\CHOLECALCIFEROL
     Indication: Prophylaxis
     Dosage: 6 DOSAGE FORM, QD (2 TABLET)
     Route: 048
     Dates: start: 20190103, end: 20190211
  139. CALCIUM\CHOLECALCIFEROL [Concomitant]
     Active Substance: CALCIUM\CHOLECALCIFEROL
     Dosage: 18 MG, QD, (6 DOSAGE FORM, TID, 2 TABLET)
     Route: 048
     Dates: start: 20190103, end: 20190211
  140. CALCIUM\CHOLECALCIFEROL [Concomitant]
     Active Substance: CALCIUM\CHOLECALCIFEROL
     Dosage: 8 DOSAGE FORM, QD
     Route: 048
     Dates: start: 20190103, end: 20191011
  141. CALCIUM\CHOLECALCIFEROL [Concomitant]
     Active Substance: CALCIUM\CHOLECALCIFEROL
     Dosage: 4 DOSAGE FORM, QD
     Route: 048
     Dates: start: 20190103, end: 20191011
  142. CALCIUM\CHOLECALCIFEROL [Concomitant]
     Active Substance: CALCIUM\CHOLECALCIFEROL
     Dosage: 2 DOSAGE FORM, QD
     Route: 048
     Dates: start: 20190103, end: 20191011
  143. CALCIUM\CHOLECALCIFEROL [Concomitant]
     Active Substance: CALCIUM\CHOLECALCIFEROL
     Dosage: 18 DOSAGE FORM, QD
     Route: 048
     Dates: start: 20190103, end: 20190211
  144. CALCIUM\CHOLECALCIFEROL [Concomitant]
     Active Substance: CALCIUM\CHOLECALCIFEROL
     Dosage: UNK, QD
     Route: 048
     Dates: start: 20190103, end: 20190211
  145. CALCIUM\CHOLECALCIFEROL [Concomitant]
     Active Substance: CALCIUM\CHOLECALCIFEROL
     Dosage: UNK, BID
     Route: 048
     Dates: start: 20190103, end: 20190211
  146. CALCIUM\CHOLECALCIFEROL [Concomitant]
     Active Substance: CALCIUM\CHOLECALCIFEROL
     Dosage: 6 DOSAGE FORM, QD (2 TABLET)
     Route: 048
     Dates: start: 20190103, end: 20190211
  147. CALCIUM\CHOLECALCIFEROL [Concomitant]
     Active Substance: CALCIUM\CHOLECALCIFEROL
     Dosage: 2 DOSAGE FORM, BID, 2 TABLET (4 DOSAGE FORM, QD)
     Route: 048
     Dates: start: 20190212, end: 20191015
  148. CALCIUM\CHOLECALCIFEROL [Concomitant]
     Active Substance: CALCIUM\CHOLECALCIFEROL
     Dosage: 2 DOSAGE FORM, BID (2 TABLET)
     Route: 048
     Dates: start: 20190212, end: 20191015
  149. CALCIUM\CHOLECALCIFEROL [Concomitant]
     Active Substance: CALCIUM\CHOLECALCIFEROL
     Dosage: UNK, BID
     Route: 048
     Dates: start: 20190212, end: 20191015
  150. CALCIUM\CHOLECALCIFEROL [Concomitant]
     Active Substance: CALCIUM\CHOLECALCIFEROL
     Dosage: 2 DOSAGE FORM, QD, 2 TABLET
     Route: 048
     Dates: start: 20191016, end: 20191029
  151. CALCIUM\CHOLECALCIFEROL [Concomitant]
     Active Substance: CALCIUM\CHOLECALCIFEROL
     Dosage: UNK, QD
     Route: 048
     Dates: start: 20191016, end: 20191029
  152. AMLODIPINE [Concomitant]
     Active Substance: AMLODIPINE BESYLATE
     Indication: Hypertension
     Dosage: 10 MG, QD
     Route: 048
  153. AMLODIPINE [Concomitant]
     Active Substance: AMLODIPINE BESYLATE
     Dosage: 10 MG, QD
     Route: 048
     Dates: end: 20191204
  154. AMLODIPINE [Concomitant]
     Active Substance: AMLODIPINE BESYLATE
     Dosage: 10 MG, QD
     Route: 048
     Dates: start: 20191204, end: 20191204
  155. AMLODIPINE [Concomitant]
     Active Substance: AMLODIPINE BESYLATE
     Dosage: 10 MG, QD
     Route: 048
     Dates: start: 20191204
  156. AMLODIPINE [Concomitant]
     Active Substance: AMLODIPINE BESYLATE
     Dosage: 10 MG, QD
     Route: 048
     Dates: end: 20191204
  157. AMLODIPINE [Concomitant]
     Active Substance: AMLODIPINE BESYLATE
     Dosage: 10 MG, QD
     Route: 048
  158. AMLODIPINE [Concomitant]
     Active Substance: AMLODIPINE BESYLATE
     Dosage: 10 MG, QD
     Route: 048
  159. METOPROLOL [Concomitant]
     Active Substance: METOPROLOL
     Indication: Hypertension
     Dosage: 50 MG, QD
     Route: 065
  160. METOPROLOL [Concomitant]
     Active Substance: METOPROLOL
     Dosage: 50 MG, QD
     Route: 048
  161. METOPROLOL [Concomitant]
     Active Substance: METOPROLOL
     Dosage: 25 MG, BID
     Route: 048
  162. METOPROLOL [Concomitant]
     Active Substance: METOPROLOL
     Dosage: 50 MG, QD
     Route: 048
  163. METOPROLOL [Concomitant]
     Active Substance: METOPROLOL
     Dosage: 50 MG, QD
     Route: 048
  164. METOPROLOL [Concomitant]
     Active Substance: METOPROLOL
     Dosage: 100 MG, QD
     Route: 048
  165. METOPROLOL [Concomitant]
     Active Substance: METOPROLOL
     Dosage: 25 MG
     Route: 048
  166. TINZAPARIN [Concomitant]
     Active Substance: TINZAPARIN
     Indication: Prophylaxis
     Dosage: 10000 IU, QD
     Route: 058
     Dates: start: 20190110
  167. DIETARY SUPPLEMENT [Concomitant]
     Active Substance: DIETARY SUPPLEMENT
     Indication: Malnutrition
     Dosage: 1 DOSAGE FORM, QD
     Route: 048
     Dates: start: 20190102, end: 20191029
  168. DIETARY SUPPLEMENT [Concomitant]
     Active Substance: DIETARY SUPPLEMENT
     Dosage: UNK, QD
     Route: 048
     Dates: start: 20190103, end: 20191111
  169. DIETARY SUPPLEMENT [Concomitant]
     Active Substance: DIETARY SUPPLEMENT
     Dosage: 1 DOSAGE FORM  1 OT, QD (1 CARTON)
     Route: 048
     Dates: start: 20190102, end: 20191029
  170. SODIUM FLUORIDE [Concomitant]
     Active Substance: SODIUM FLUORIDE
     Indication: Malnutrition
     Dosage: 90 ML, QD
     Route: 048
     Dates: start: 20190103
  171. VALACYCLOVIR HYDROCHLORIDE [Concomitant]
     Active Substance: VALACYCLOVIR HYDROCHLORIDE
     Indication: Prophylaxis
     Dosage: 500 MG, QD
     Route: 048
     Dates: start: 20190817
  172. MEGACE [Concomitant]
     Active Substance: MEGESTROL ACETATE
     Indication: Malnutrition
     Dosage: 7.5 ML, BID
     Route: 048
     Dates: start: 20191011
  173. MEGACE [Concomitant]
     Active Substance: MEGESTROL ACETATE
     Dosage: 7.5 ML, QD
     Route: 048
     Dates: start: 20191011
  174. MEGACE [Concomitant]
     Active Substance: MEGESTROL ACETATE
     Dosage: 15 MG, QD
     Route: 048
     Dates: start: 20191011
  175. MEGACE [Concomitant]
     Active Substance: MEGESTROL ACETATE
     Dosage: 15 ML, QD
     Route: 048
     Dates: start: 20191019
  176. FOLIC ACID [Concomitant]
     Active Substance: FOLIC ACID
     Indication: Anaemia
     Dosage: 5 MG, QD
     Route: 048
  177. FOLIC ACID [Concomitant]
     Active Substance: FOLIC ACID
     Dosage: 5 MG
     Route: 048
  178. FOLIC ACID [Concomitant]
     Active Substance: FOLIC ACID
     Dosage: 5 MG
     Route: 048
  179. FOLIC ACID [Concomitant]
     Active Substance: FOLIC ACID
     Dosage: 5 MG
     Route: 048
  180. FOLIC ACID [Concomitant]
     Active Substance: FOLIC ACID
     Dosage: 5 MG, QD
     Route: 048
  181. ASPIRIN [Concomitant]
     Active Substance: ASPIRIN
     Indication: Prophylaxis
     Dosage: 75 MG, QD
     Route: 048
  182. ASPIRIN [Concomitant]
     Active Substance: ASPIRIN
     Indication: Anaemia
     Dosage: 75 MG, QD
     Route: 048
  183. ASPIRIN [Concomitant]
     Active Substance: ASPIRIN
     Dosage: 75 MG, QD
     Route: 048
  184. ASPIRIN [Concomitant]
     Active Substance: ASPIRIN
     Dosage: 75 ML, 30 QD
     Route: 048
  185. SODIUM FLUORIDE [Concomitant]
     Active Substance: SODIUM FLUORIDE
     Indication: Malnutrition
     Dosage: 90 ML, QD
     Route: 048
     Dates: start: 20190103
  186. SODIUM FLUORIDE [Concomitant]
     Active Substance: SODIUM FLUORIDE
     Dosage: 90 MG, QD
     Route: 048
     Dates: start: 20190103
  187. SODIUM FLUORIDE [Concomitant]
     Active Substance: SODIUM FLUORIDE
     Dosage: UNK
     Route: 048
     Dates: start: 20190103
  188. COTRIMOXAZOLE [Concomitant]
     Active Substance: SULFAMETHOXAZOLE\TRIMETHOPRIM
     Indication: Antifungal prophylaxis
     Dosage: 480 MG, QD
     Route: 048
     Dates: start: 20180817, end: 20191015
  189. COTRIMOXAZOLE [Concomitant]
     Active Substance: SULFAMETHOXAZOLE\TRIMETHOPRIM
     Dosage: 480 MG, QD
     Route: 048
     Dates: start: 20180817, end: 20191015
  190. CUPRIC SULFATE ANHYDROUS [Concomitant]
     Active Substance: CUPRIC SULFATE ANHYDROUS
     Indication: Malnutrition
     Dosage: UNK, QD (BID)
     Route: 048
     Dates: start: 20190103, end: 20191011
  191. CUPRIC SULFATE ANHYDROUS [Concomitant]
     Active Substance: CUPRIC SULFATE ANHYDROUS
     Dosage: 1 DOSAGE FORM, QD
     Route: 048
     Dates: start: 20190103, end: 20191011
  192. CUPRIC SULFATE ANHYDROUS [Concomitant]
     Active Substance: CUPRIC SULFATE ANHYDROUS
     Dosage: UNK
     Route: 065
  193. LIDOCAINE [Concomitant]
     Active Substance: LIDOCAINE
     Indication: Tongue coated
     Dosage: UNK, QD
     Route: 048
     Dates: start: 20190103, end: 20191011
  194. LIDOCAINE [Concomitant]
     Active Substance: LIDOCAINE
     Dosage: 30 ML, QD
     Route: 048
     Dates: start: 20191116, end: 20191220
  195. LIDOCAINE [Concomitant]
     Active Substance: LIDOCAINE
     Dosage: 90 ML, QD
     Route: 048
     Dates: start: 20191116, end: 20191220
  196. LIDOCAINE [Concomitant]
     Active Substance: LIDOCAINE
     Dosage: 30 ML, QD (10 MILLILITER, TID)
     Route: 048
     Dates: start: 20191116, end: 20191220
  197. LIDOCAINE [Concomitant]
     Active Substance: LIDOCAINE
     Dosage: 90 ML, QD (30 MILLILITER, TID)
     Route: 048
     Dates: start: 20191116, end: 20191220
  198. CHOLECALCIFEROL [Concomitant]
     Active Substance: CHOLECALCIFEROL
     Indication: Malnutrition
     Dosage: UNK, BID
     Route: 048
     Dates: start: 20190103, end: 20191011
  199. CHOLECALCIFEROL [Concomitant]
     Active Substance: CHOLECALCIFEROL
     Dosage: UNK, BID
     Route: 048
     Dates: start: 20190103, end: 20191011
  200. CHOLECALCIFEROL [Concomitant]
     Active Substance: CHOLECALCIFEROL
     Dosage: UNK, BID
     Route: 048
     Dates: start: 20190103, end: 20191011
  201. CHOLECALCIFEROL [Concomitant]
     Active Substance: CHOLECALCIFEROL
     Dosage: UNK
     Route: 048
     Dates: start: 20191016, end: 20191029
  202. CHOLECALCIFEROL [Concomitant]
     Active Substance: CHOLECALCIFEROL
     Dosage: UNK
     Route: 065
  203. CHOLECALCIFEROL [Concomitant]
     Active Substance: CHOLECALCIFEROL
     Dosage: UNK
     Route: 048
     Dates: start: 20190212, end: 20191015
  204. CHOLECALCIFEROL [Concomitant]
     Active Substance: CHOLECALCIFEROL
     Dosage: UNK, QD
     Route: 048
     Dates: start: 20191016, end: 20191029
  205. CALCIUM CARBONATE [Concomitant]
     Active Substance: CALCIUM CARBONATE
     Indication: Malnutrition
     Dosage: UNK, BID
     Route: 048
     Dates: start: 20190103, end: 20191011
  206. MANGANESE SULFATE [Concomitant]
     Active Substance: MANGANESE SULFATE
     Indication: Malnutrition
     Dosage: UNK, QD
     Route: 048
     Dates: start: 20190103, end: 20191011
  207. MANGANESE SULFATE [Concomitant]
     Active Substance: MANGANESE SULFATE
     Dosage: UNK, BID
     Route: 048
     Dates: start: 20190103, end: 20191011
  208. MANGANESE SULFATE [Concomitant]
     Active Substance: MANGANESE SULFATE
     Dosage: UNK
     Route: 065
  209. MAGNESIUM OXIDE [Concomitant]
     Active Substance: MAGNESIUM OXIDE
     Indication: Malnutrition
     Dosage: UNK, BID
     Route: 048
     Dates: start: 20190103, end: 20191011
  210. MAGNESIUM OXIDE [Concomitant]
     Active Substance: MAGNESIUM OXIDE
     Dosage: UNK, QD
     Route: 048
     Dates: start: 20190103, end: 20191011
  211. MAGNESIUM OXIDE [Concomitant]
     Active Substance: MAGNESIUM OXIDE
     Dosage: UNK, QD
     Route: 048
     Dates: start: 20190103, end: 20191011
  212. MAGNESIUM OXIDE [Concomitant]
     Active Substance: MAGNESIUM OXIDE
     Dosage: UNK
     Route: 048
  213. MAGNESIUM OXIDE [Concomitant]
     Active Substance: MAGNESIUM OXIDE
     Dosage: UNK
     Route: 048
  214. MAGNESIUM OXIDE [Concomitant]
     Active Substance: MAGNESIUM OXIDE
     Dosage: UNK
     Route: 048
  215. VITAMINS NOS [Concomitant]
     Active Substance: VITAMINS
     Indication: Malnutrition
     Dosage: UNK, QD
     Route: 065
     Dates: start: 20190102, end: 20190129
  216. VITAMINS NOS [Concomitant]
     Active Substance: VITAMINS
     Indication: Prophylaxis
     Dosage: 1 DOSAGE FORM, QD
     Route: 048
     Dates: start: 20190103, end: 20191011
  217. VITAMINS NOS [Concomitant]
     Active Substance: VITAMINS
     Dosage: UNK, QD
     Route: 048
     Dates: start: 20190103, end: 20191111
  218. VITAMINS NOS [Concomitant]
     Active Substance: VITAMINS
     Dosage: UNK, QD
     Route: 048
     Dates: start: 20190104
  219. TRIMETHOPRIM [Concomitant]
     Active Substance: TRIMETHOPRIM
     Indication: Antifungal prophylaxis
     Dosage: 20 ML, QD
     Route: 048
     Dates: start: 20190102, end: 20191015
  220. TRIMETHOPRIM [Concomitant]
     Active Substance: TRIMETHOPRIM
     Indication: Prophylaxis
     Dosage: UNK
     Route: 048
     Dates: start: 20190102, end: 20191015
  221. TRIMETHOPRIM [Concomitant]
     Active Substance: TRIMETHOPRIM
     Dosage: 480 MG, QD
     Route: 048
     Dates: start: 20180817, end: 20191015
  222. TRIMETHOPRIM [Concomitant]
     Active Substance: TRIMETHOPRIM
     Dosage: UNK
     Route: 065
     Dates: start: 20191011
  223. TRIMETHOPRIM [Concomitant]
     Active Substance: TRIMETHOPRIM
     Dosage: 10 ML
     Route: 048
     Dates: start: 20191011
  224. TRIMETHOPRIM [Concomitant]
     Active Substance: TRIMETHOPRIM
     Dosage: 480 MG, QD
     Route: 048
     Dates: start: 20191011
  225. TRIMETHOPRIM [Concomitant]
     Active Substance: TRIMETHOPRIM
     Dosage: 480 MG, QD
     Route: 048
  226. TRIMETHOPRIM [Concomitant]
     Active Substance: TRIMETHOPRIM
     Dosage: 480 MG, QD
     Route: 048
  227. FORTICAL [Concomitant]
     Active Substance: CALCITONIN SALMON
     Indication: Malnutrition
     Dosage: UNK
     Route: 065
  228. FORTICAL [Concomitant]
     Active Substance: CALCITONIN SALMON
     Dosage: UNK
     Route: 065
     Dates: start: 20190103, end: 20191011
  229. MAGNESIUM SULFATE [Concomitant]
     Active Substance: MAGNESIUM SULFATE
     Indication: Malnutrition
     Dosage: UNK
     Route: 065
  230. MAGNESIUM SULFATE [Concomitant]
     Active Substance: MAGNESIUM SULFATE
     Dosage: UNK, BID
     Route: 048
     Dates: start: 20190103, end: 20191011
  231. MAGNESIUM SULFATE [Concomitant]
     Active Substance: MAGNESIUM SULFATE
     Dosage: UNK, QD
     Route: 048
     Dates: start: 20190103, end: 20191011
  232. CALCITONIN [Concomitant]
     Active Substance: CALCITONIN
     Indication: Malnutrition
     Dosage: UNK, QD
     Route: 048
     Dates: start: 20190103, end: 20191011
  233. CALCITONIN [Concomitant]
     Active Substance: CALCITONIN
     Dosage: UNK
     Route: 065
  234. CALCITONIN [Concomitant]
     Active Substance: CALCITONIN
     Dosage: UNK, BID
     Route: 048
     Dates: start: 20190130, end: 20191011
  235. CALCITONIN [Concomitant]
     Active Substance: CALCITONIN
     Dosage: UNK
     Route: 065
  236. CALCITONIN [Concomitant]
     Active Substance: CALCITONIN
     Dosage: UNK, QD
     Route: 048
     Dates: start: 20190130, end: 20191011
  237. MINERALS\VITAMINS [Concomitant]
     Active Substance: MINERALS\VITAMINS
     Indication: Prophylaxis
     Dosage: UNK UNK, QD
     Route: 048
     Dates: start: 20190104
  238. MINERALS\VITAMINS [Concomitant]
     Active Substance: MINERALS\VITAMINS
     Dosage: UNK
     Route: 065
  239. MINERALS\VITAMINS [Concomitant]
     Active Substance: MINERALS\VITAMINS
     Dosage: 1 DOSAGE FORM, QD
     Route: 048
     Dates: start: 20190104
  240. ASPIRIN [Concomitant]
     Active Substance: ASPIRIN
     Indication: Prophylaxis
     Dosage: 75 ML, QD (75 MILLILITER 30 ML, QD (30 MILLILITER))
     Route: 048
  241. ASPIRIN [Concomitant]
     Active Substance: ASPIRIN
     Dosage: 75 MG, QD
     Route: 048
  242. ASPIRIN [Concomitant]
     Active Substance: ASPIRIN
     Dosage: 75 MG, QD
     Route: 048
  243. PENTAZOCINE LACTATE [Concomitant]
     Active Substance: PENTAZOCINE LACTATE
     Indication: Malnutrition
     Dosage: UNK, BID
     Route: 048
     Dates: start: 20191003, end: 20191011
  244. PENTAZOCINE LACTATE [Concomitant]
     Active Substance: PENTAZOCINE LACTATE
     Dosage: UNK, QD (BID)
     Route: 048
     Dates: start: 20191003, end: 20191011
  245. PENTAZOCINE LACTATE [Concomitant]
     Active Substance: PENTAZOCINE LACTATE
     Dosage: UNK, BID
     Route: 048
     Dates: start: 20191003, end: 20191011
  246. PENTAZOCINE LACTATE [Concomitant]
     Active Substance: PENTAZOCINE LACTATE
     Dosage: UNK, BID
     Route: 048
     Dates: start: 20191020, end: 20191029
  247. PENTAZOCINE LACTATE [Concomitant]
     Active Substance: PENTAZOCINE LACTATE
     Dosage: UNK, QD
     Route: 048
     Dates: start: 20191020, end: 20191020
  248. PENTAZOCINE LACTATE [Concomitant]
     Active Substance: PENTAZOCINE LACTATE
     Dosage: UNK, QD
     Route: 048
     Dates: start: 20191020, end: 20191029
  249. ASPIRIN [Concomitant]
     Active Substance: ASPIRIN
     Indication: Prophylaxis
     Dosage: 75 MG, QD
     Route: 048
  250. ASPIRIN [Concomitant]
     Active Substance: ASPIRIN
     Dosage: 75 ML
     Route: 048
  251. ASPIRIN [Concomitant]
     Active Substance: ASPIRIN
     Dosage: 75 MG, QD (75 MILLILITER 30 ML, QD (30 MILLILITER)
     Route: 048
  252. ASPIRIN [Concomitant]
     Active Substance: ASPIRIN
     Dosage: 75 MG, QD
     Route: 048
  253. ASPIRIN [Concomitant]
     Active Substance: ASPIRIN
     Dosage: 75 MG, QD
     Route: 048
  254. DECAPEPTYL [Concomitant]
     Indication: Prostate cancer
     Dosage: 45 MG
     Route: 065
     Dates: start: 20190515
  255. DECAPEPTYL [Concomitant]
     Dosage: 18.24 MG
     Route: 065
  256. DECAPEPTYL [Concomitant]
     Dosage: UNK
     Route: 065
  257. DECAPEPTYL [Concomitant]
     Dosage: 45 MG, QD
     Route: 065
     Dates: start: 20190515
  258. CYCLOPHOSPHAMIDE [Concomitant]
     Active Substance: CYCLOPHOSPHAMIDE
     Indication: Plasma cell myeloma
     Dosage: 36.6 MG
     Route: 065
     Dates: start: 2019
  259. CYCLOPHOSPHAMIDE [Concomitant]
     Active Substance: CYCLOPHOSPHAMIDE
     Dosage: 300 MG, QD
     Route: 048
     Dates: start: 20191010
  260. CYCLOPHOSPHAMIDE [Concomitant]
     Active Substance: CYCLOPHOSPHAMIDE
     Dosage: UNK
     Route: 065
  261. CYCLOPHOSPHAMIDE [Concomitant]
     Active Substance: CYCLOPHOSPHAMIDE
     Dosage: 300 MG, QD
     Route: 048
     Dates: end: 20191010
  262. CYCLOPHOSPHAMIDE [Concomitant]
     Active Substance: CYCLOPHOSPHAMIDE
     Dosage: 7800 MG, QD
     Route: 048
     Dates: start: 20191213, end: 20191213
  263. CYCLOPHOSPHAMIDE [Concomitant]
     Active Substance: CYCLOPHOSPHAMIDE
     Dosage: 300 MG
     Route: 065
     Dates: start: 20191213
  264. CYCLOPHOSPHAMIDE [Concomitant]
     Active Substance: CYCLOPHOSPHAMIDE
     Dosage: 11000 MG
     Route: 065
     Dates: end: 20191213
  265. CYCLOPHOSPHAMIDE [Concomitant]
     Active Substance: CYCLOPHOSPHAMIDE
     Dosage: 300 MG, QW
     Route: 048
     Dates: start: 20191213, end: 20191228
  266. CYCLOPHOSPHAMIDE [Concomitant]
     Active Substance: CYCLOPHOSPHAMIDE
     Dosage: 300 MG, QW
     Route: 048
     Dates: start: 20191213, end: 20191228
  267. CYCLOPHOSPHAMIDE [Concomitant]
     Active Substance: CYCLOPHOSPHAMIDE
     Dosage: 36.6 MG
     Route: 065
     Dates: end: 20191213
  268. CYCLOPHOSPHAMIDE [Concomitant]
     Active Substance: CYCLOPHOSPHAMIDE
     Dosage: 7800 MG
     Route: 065
     Dates: start: 20191213
  269. CYCLOPHOSPHAMIDE [Concomitant]
     Active Substance: CYCLOPHOSPHAMIDE
     Dosage: UNK
     Route: 065
     Dates: start: 2019
  270. CYCLOPHOSPHAMIDE [Concomitant]
     Active Substance: CYCLOPHOSPHAMIDE
     Dosage: UNK
     Route: 065
     Dates: start: 2019, end: 20191226
  271. CYCLOPHOSPHAMIDE [Concomitant]
     Active Substance: CYCLOPHOSPHAMIDE
     Dosage: UNK
     Route: 065
     Dates: start: 20191213
  272. CYCLOPHOSPHAMIDE [Concomitant]
     Active Substance: CYCLOPHOSPHAMIDE
     Dosage: UNK
     Route: 065
     Dates: end: 2019
  273. CYCLOPHOSPHAMIDE [Concomitant]
     Active Substance: CYCLOPHOSPHAMIDE
     Dosage: 36.6 MG
     Route: 065
     Dates: start: 2019
  274. CYCLOPHOSPHAMIDE [Concomitant]
     Active Substance: CYCLOPHOSPHAMIDE
     Dosage: 300 MG, QD
     Route: 065
     Dates: start: 20190907, end: 20191010
  275. CYCLOPHOSPHAMIDE [Concomitant]
     Active Substance: CYCLOPHOSPHAMIDE
     Dosage: 300 MG, QD
     Route: 048
     Dates: start: 20191213
  276. CYCLOPHOSPHAMIDE [Concomitant]
     Active Substance: CYCLOPHOSPHAMIDE
     Dosage: UNK
     Route: 065
     Dates: end: 2019
  277. CYCLOPHOSPHAMIDE [Concomitant]
     Active Substance: CYCLOPHOSPHAMIDE
     Dosage: UNK
     Route: 065
  278. CYCLOPHOSPHAMIDE [Concomitant]
     Active Substance: CYCLOPHOSPHAMIDE
     Dosage: 11100 MG
     Route: 065
     Dates: end: 20191213
  279. CYCLOPHOSPHAMIDE [Concomitant]
     Active Substance: CYCLOPHOSPHAMIDE
     Dosage: 300 MG, QD
     Route: 048
  280. CYCLOPHOSPHAMIDE [Concomitant]
     Active Substance: CYCLOPHOSPHAMIDE
     Dosage: UNK
     Route: 065
  281. CYCLOPHOSPHAMIDE [Concomitant]
     Active Substance: CYCLOPHOSPHAMIDE
     Dosage: 36.59 MG
     Route: 065
     Dates: start: 2019
  282. CYCLOPHOSPHAMIDE [Concomitant]
     Active Substance: CYCLOPHOSPHAMIDE
     Dosage: 36.59 MG
     Route: 065
     Dates: start: 20191213
  283. CYCLOPHOSPHAMIDE [Concomitant]
     Active Substance: CYCLOPHOSPHAMIDE
     Dosage: 300 MG, QD
     Route: 048
     Dates: start: 2019
  284. CYCLOPHOSPHAMIDE [Concomitant]
     Active Substance: CYCLOPHOSPHAMIDE
     Dosage: 300 MG, QD
     Route: 048
     Dates: start: 20190709, end: 20190709
  285. CYCLOPHOSPHAMIDE [Concomitant]
     Active Substance: CYCLOPHOSPHAMIDE
     Dosage: 4 MG, QD
     Route: 048
     Dates: start: 20191213, end: 20191226
  286. CYCLOPHOSPHAMIDE [Concomitant]
     Active Substance: CYCLOPHOSPHAMIDE
     Dosage: 300 MG, QD
     Route: 048
  287. INFLUENZA VIRUS VACCINE [Concomitant]
     Active Substance: INFLUENZA VIRUS VACCINE
     Indication: Prophylaxis
     Dosage: 1 DOSAGE FORM, QD (1 AMPULE), OD
     Route: 065
     Dates: start: 20191112, end: 20191112
  288. INFLUENZA VIRUS VACCINE [Concomitant]
     Active Substance: INFLUENZA VIRUS VACCINE
     Dosage: UNK
     Route: 065
  289. CALCITONIN SALMON [Concomitant]
     Active Substance: CALCITONIN SALMON
     Indication: Product used for unknown indication
     Dosage: UNK
     Route: 065
  290. CALCITONIN SALMON [Concomitant]
     Active Substance: CALCITONIN SALMON
     Dosage: UNK, BID
     Route: 048
     Dates: start: 20190103, end: 20191011
  291. CALCITONIN SALMON [Concomitant]
     Active Substance: CALCITONIN SALMON
     Dosage: UNK, QD
     Route: 048
     Dates: start: 20190103, end: 20191011
  292. CALCITONIN SALMON [Concomitant]
     Active Substance: CALCITONIN SALMON
     Dosage: UNK
     Route: 048
     Dates: start: 20191020, end: 20191029
  293. CALCITONIN SALMON [Concomitant]
     Active Substance: CALCITONIN SALMON
     Dosage: UNK, QD
     Route: 048
     Dates: start: 20190103, end: 20191011
  294. CALCITONIN SALMON [Concomitant]
     Active Substance: CALCITONIN SALMON
     Dosage: UNK, QD
     Route: 048
     Dates: start: 20190103, end: 20191011
  295. ZINC SULFATE [Concomitant]
     Active Substance: ZINC SULFATE
     Indication: Malnutrition
     Dosage: UNK, BID
     Route: 048
     Dates: start: 20190103, end: 20191011
  296. ZINC SULFATE [Concomitant]
     Active Substance: ZINC SULFATE
     Dosage: UNK
     Route: 065
  297. ZINC SULFATE [Concomitant]
     Active Substance: ZINC SULFATE
     Dosage: UNK, QD
     Route: 048
     Dates: start: 20190103, end: 20191011
  298. CALCIUM ACETATE [Concomitant]
     Active Substance: CALCIUM ACETATE
     Indication: Malnutrition
     Dosage: UNK, BID
     Route: 048
     Dates: start: 20191003, end: 20191011
  299. CALCIUM ACETATE [Concomitant]
     Active Substance: CALCIUM ACETATE
     Dosage: UNK, QD
     Route: 048
     Dates: start: 20191020, end: 20191029
  300. CALCIUM ACETATE [Concomitant]
     Active Substance: CALCIUM ACETATE
     Dosage: UNK, QD
     Route: 048
     Dates: start: 20191003, end: 20191011
  301. CHOLECALCIFEROL [Concomitant]
     Active Substance: CHOLECALCIFEROL
     Indication: Malnutrition
     Dosage: UNK, BID
     Route: 048
     Dates: start: 20190103, end: 20191011
  302. CHOLECALCIFEROL [Concomitant]
     Active Substance: CHOLECALCIFEROL
     Dosage: UNK, BID
     Route: 048
     Dates: start: 20190103, end: 20190211
  303. CHOLECALCIFEROL [Concomitant]
     Active Substance: CHOLECALCIFEROL
     Dosage: UNK, BID
     Route: 048
     Dates: start: 20190212, end: 20191015
  304. CHOLECALCIFEROL [Concomitant]
     Active Substance: CHOLECALCIFEROL
     Dosage: UNK, QD
     Route: 048
     Dates: start: 20191016, end: 20191029
  305. PIPERACILLIN SODIUM\TAZOBACTAM SODIUM [Concomitant]
     Active Substance: PIPERACILLIN SODIUM\TAZOBACTAM SODIUM
     Indication: Product used for unknown indication
     Dosage: 4.5 G
     Route: 042
     Dates: start: 20190106, end: 20190110
  306. SOLPADOL [Concomitant]
     Indication: Product used for unknown indication
     Dosage: UNK
     Route: 048
  307. ENOXAPARIN SODIUM [Concomitant]
     Active Substance: ENOXAPARIN SODIUM
     Indication: Product used for unknown indication
     Dosage: 40 MG, QD
     Route: 048
     Dates: start: 20190103, end: 20190109
  308. THIAMINE [Concomitant]
     Active Substance: THIAMINE
     Indication: Product used for unknown indication
     Dosage: 300 MG
     Route: 048
     Dates: start: 20190105, end: 20190112
  309. CLARITHROMYCIN [Concomitant]
     Active Substance: CLARITHROMYCIN
     Indication: Product used for unknown indication
     Dosage: 500 MG
     Route: 048
     Dates: start: 20190106, end: 20190109
  310. DOXYCYCLINE [Concomitant]
     Active Substance: DOXYCYCLINE
     Indication: Product used for unknown indication
     Dosage: 400 MG, QD (200 MILLIGRAM, BID)
     Route: 065
     Dates: start: 20190109, end: 20190114
  311. INNOHEP [Concomitant]
     Active Substance: TINZAPARIN SODIUM
     Indication: Product used for unknown indication
     Dosage: 10000 IU, QD  (10000 IU, OD))
     Route: 058
  312. AUGMENTIN [Concomitant]
     Active Substance: AMOXICILLIN\CLAVULANATE POTASSIUM
     Indication: Product used for unknown indication
     Dosage: 1.2 G
     Route: 042
     Dates: start: 20190102, end: 20190103
  313. AUGMENTIN [Concomitant]
     Active Substance: AMOXICILLIN\CLAVULANATE POTASSIUM
     Dosage: 625 MG
     Route: 048
     Dates: start: 20190103, end: 20190106
  314. MAGNESIUM [Concomitant]
     Active Substance: MAGNESIUM
     Indication: Product used for unknown indication
     Dosage: UNK
     Route: 048
     Dates: start: 20190105, end: 20190112

REACTIONS (10)
  - Pulmonary embolism [Fatal]
  - COVID-19 [Fatal]
  - Respiratory tract infection [Fatal]
  - Respiratory tract infection viral [Fatal]
  - Respiratory tract infection bacterial [Fatal]
  - Platelet count decreased [Unknown]
  - Thrombocytopenia [Unknown]
  - Anaemia [Recovered/Resolved]
  - Neutropenia [Recovered/Resolved]
  - Intentional product use issue [Unknown]

NARRATIVE: CASE EVENT DATE: 20181008
